FAERS Safety Report 8831296 (Version 5)
Quarter: 2012Q4

REPORT INFORMATION
  Report Type: Report from Study
  Country: DE (occurrence: DE)
  Receive Date: 20121009
  Receipt Date: 20121204
  Transmission Date: 20130627
  Serious: Yes (Hospitalization)
  Sender: FDA-Public Use
  Company Number: PHHY2012DE084955

PATIENT
  Sex: Male
  Weight: 81 kg

DRUGS (13)
  1. AMN107 [Suspect]
     Indication: CHRONIC MYELOID LEUKAEMIA
     Dosage: 800 mg, QD
     Route: 048
     Dates: start: 20110715, end: 20110816
  2. AMN107 [Suspect]
     Dosage: 800 mg, QD
     Route: 048
     Dates: start: 20110901
  3. SOTALOL [Concomitant]
     Indication: TREMOR
     Dosage: 40 mg, daily
     Route: 048
     Dates: start: 20110628
  4. SOTALOL [Concomitant]
     Dosage: 40 mg, QD
     Dates: start: 20110723
  5. CARBIMAZOLE [Concomitant]
     Indication: HYPERTHYROIDISM
     Dosage: 10 mg, daily
     Route: 048
     Dates: start: 20110715
  6. RIVOTRIL [Concomitant]
     Dates: start: 201109, end: 20111007
  7. BETAHISTIN PLIVA [Concomitant]
     Dates: start: 20111206, end: 20120531
  8. PANTOZOL [Concomitant]
     Dates: start: 20111206, end: 20120531
  9. TAMSULOSIN [Concomitant]
     Dates: start: 20111206
  10. CARBAMAZEPIN [Concomitant]
     Dates: start: 20120601, end: 20120615
  11. OMEPRAZOL ^ACYFABRIK^ [Concomitant]
     Dates: start: 20120601
  12. ETILEFRIN [Concomitant]
     Dates: start: 20120601
  13. TAVEGIL                                 /GFR/ [Concomitant]
     Dates: start: 20120907

REACTIONS (2)
  - Epididymitis [Recovered/Resolved]
  - Blood bilirubin increased [Not Recovered/Not Resolved]
